FAERS Safety Report 8536196-X (Version None)
Quarter: 2012Q3

REPORT INFORMATION
  Report Type: 
  Country: None (occurrence: None)
  Receive Date: 20120725
  Receipt Date: 20120716
  Transmission Date: 20120928
  Serious: Yes (Other)
  Sender: FDA-Public Use
  Company Number: US-SANOFI-AVENTIS-2012SA049690

PATIENT
  Sex: Female

DRUGS (8)
  1. ASPIRIN [Concomitant]
  2. DIGOXIN [Concomitant]
  3. MULTAQ [Suspect]
     Route: 048
  4. PREVACID [Concomitant]
  5. PRAVACHOL [Concomitant]
  6. XOPENEX [Concomitant]
  7. MULTAQ [Suspect]
     Indication: ATRIAL FIBRILLATION
     Route: 048
     Dates: start: 20100101
  8. ASMANEX TWISTHALER [Concomitant]

REACTIONS (3)
  - ATRIAL FIBRILLATION [None]
  - CYSTITIS [None]
  - UNDERDOSE [None]
